FAERS Safety Report 6202971-X (Version None)
Quarter: 2009Q2

REPORT INFORMATION
  Report Type: 
  Country: None (occurrence: None)
  Receive Date: 20090520
  Receipt Date: 20090508
  Transmission Date: 20091009
  Serious: Yes (Life-Threatening, Hospitalization, Disabling, Other)
  Sender: FDA-Public Use
  Company Number: 2009AP001886

PATIENT
  Age: 57 Year
  Sex: Female

DRUGS (26)
  1. CITALOPRAM HYDROBROMIDE [Suspect]
     Indication: DEPRESSION
     Dosage: 20 MG; PO
     Route: 048
     Dates: start: 20090202, end: 20090205
  2. RAMIPRIL [Suspect]
     Indication: HYPERTENSION
     Dosage: 2.5 MG; QD PO
     Route: 048
     Dates: start: 20060101, end: 20090205
  3. BENDROFLUMETHIAZIDE (BENDROFLUMETHIAZIDE) [Suspect]
     Indication: HYPERTENSION
     Dosage: 2.5 MG; QD PO
     Route: 048
     Dates: start: 20050101, end: 20090205
  4. METRONIDAZOLE [Suspect]
     Indication: PROPHYLAXIS
     Dosage: 200 MG; TID PO
     Route: 048
     Dates: start: 20090202, end: 20090205
  5. ALLIUM SATIVUM (ALLIUM SATIVUM) [Concomitant]
  6. MAGNESIUM (MAGNESIUM) [Concomitant]
  7. BIOTIN (BIOTIN) [Concomitant]
  8. CHROMIUM (CHROMIUM) [Concomitant]
  9. COPPER (COPPER) [Concomitant]
  10. IODINE (IODINE) [Concomitant]
  11. IRON (IRON) [Concomitant]
  12. MANGANESE (MANGANESE) [Concomitant]
  13. NICOTINIC ACID [Concomitant]
  14. AMINOBENZOIC ACID (AMINOBENZOIC ACID) [Concomitant]
  15. RIBOFLAVIN (RIBOFLAVIN) [Concomitant]
  16. SELENIUM (SELENIUM) [Concomitant]
  17. SOY ISOFLAVONES (SOY ISOFLAVONES) [Concomitant]
  18. THIAMINE (THIAMINE) [Concomitant]
  19. RETINOL (RETINOL) [Concomitant]
  20. PYRIDOXINE HYDROCHLORIDE (PYRIDOXINE HYDROCHLORIDE) [Concomitant]
  21. ASCORBIC ACID [Concomitant]
  22. ERGOCALCIFEROL [Concomitant]
  23. TOCOPHEROL (TOCOPHEROL) [Concomitant]
  24. ZINC (ZINC) [Concomitant]
  25. ACETAMINOPHEN [Concomitant]
  26. MAGNESIUM (MAGNESIUM) [Concomitant]

REACTIONS (9)
  - CENTRAL PONTINE MYELINOLYSIS [None]
  - CONVULSION [None]
  - DRUG INTERACTION [None]
  - FEELING HOT [None]
  - GAIT DISTURBANCE [None]
  - HYPONATRAEMIA [None]
  - MEMORY IMPAIRMENT [None]
  - THIRST [None]
  - VOMITING [None]
